FAERS Safety Report 7902715 (Version 6)
Quarter: 2013Q2

REPORT INFORMATION
  Report Type: Report from Study
  Country: CA (occurrence: CA)
  Receive Date: 20110418
  Receipt Date: 20130531
  Transmission Date: 20140414
  Serious: Yes (Death, Hospitalization)
  Sender: FDA-Public Use
  Company Number: CA-ROCHE-770163

PATIENT
  Age: 71 Year
  Sex: Female

DRUGS (13)
  1. TOCILIZUMAB [Suspect]
     Indication: RHEUMATOID ARTHRITIS
     Route: 042
  2. CORTISONE [Concomitant]
     Route: 065
  3. PLAQUENIL [Concomitant]
  4. ASPIRIN [Concomitant]
  5. NITRO [Concomitant]
     Route: 065
  6. FUROSEMIDE [Concomitant]
  7. CRESTOR [Concomitant]
  8. ALENDRONATE SODIUM [Concomitant]
     Dosage: DRUG REPORTED AS ALENDRONATE
     Route: 065
  9. SYMBICORT [Concomitant]
  10. ATIVAN [Concomitant]
  11. CORTISONE [Concomitant]
  12. NEXIUM [Concomitant]
     Route: 065
  13. ACETAMINOPHEN [Concomitant]

REACTIONS (6)
  - Lung disorder [Fatal]
  - Acute pulmonary oedema [Recovered/Resolved]
  - Ecchymosis [Unknown]
  - Anaemia [Recovered/Resolved]
  - Muscle spasms [Not Recovered/Not Resolved]
  - Wound [Recovering/Resolving]
